FAERS Safety Report 5265718-X (Version None)
Quarter: 2007Q1

REPORT INFORMATION
  Report Type: 
  Country: None (occurrence: None)
  Receive Date: 20061213
  Receipt Date: 20041029
  Transmission Date: 20070707
  Serious: Yes (Other)
  Sender: FDA-Public Use
  Company Number: 2004UW22475

PATIENT
  Sex: Female

DRUGS (2)
  1. IRESSA [Suspect]
  2. IRESSA [Suspect]

REACTIONS (3)
  - HAIR DISORDER [None]
  - HERPES ZOSTER [None]
  - STOMATITIS [None]
